FAERS Safety Report 8409199-3 (Version None)
Quarter: 2012Q2

REPORT INFORMATION
  Report Type: 
  Country: None (occurrence: None)
  Receive Date: 20120604
  Receipt Date: 20120531
  Transmission Date: 20120825
  Serious: Yes (Death, Hospitalization, Other)
  Sender: FDA-Public Use
  Company Number: US-B.I. PHARMACEUTICALS,INC./RIDGEFIELD-2012-BP-11265BP

PATIENT
  Sex: Male

DRUGS (9)
  1. CIPROFLOXACIN HCL [Concomitant]
     Indication: URINARY TRACT INFECTION
  2. TOPROL-XL [Concomitant]
     Indication: HYPERTENSION
  3. LASIX [Concomitant]
     Indication: CARDIAC FAILURE CONGESTIVE
  4. TRADJENTA [Suspect]
     Indication: TYPE 2 DIABETES MELLITUS
     Dates: start: 20120121
  5. ARB [Concomitant]
  6. ZOCOR [Concomitant]
  7. SIMVASTATIN [Suspect]
     Indication: BLOOD CHOLESTEROL INCREASED
  8. ACE INHIBITOR [Concomitant]
  9. COLTRAZINE [Concomitant]
     Indication: GOUT

REACTIONS (4)
  - RHABDOMYOLYSIS [None]
  - ACUTE RESPIRATORY DISTRESS SYNDROME [None]
  - RENAL FAILURE [None]
  - POTENTIATING DRUG INTERACTION [None]
